FAERS Safety Report 4366717-2 (Version None)
Quarter: 2004Q2

REPORT INFORMATION
  Report Type: 
  Country: None (occurrence: None)
  Receive Date: 20040527
  Receipt Date: 20040511
  Transmission Date: 20050107
  Serious: Yes (Hospitalization)
  Sender: FDA-Public Use
  Company Number: FR-MERCK-0405FRA00031

PATIENT
  Age: 42 Year
  Sex: Male

DRUGS (1)
  1. ZOCOR [Suspect]
     Indication: DYSLIPIDAEMIA
     Route: 048
     Dates: start: 19980101, end: 20040101

REACTIONS (1)
  - CHOLELITHIASIS [None]
